FAERS Safety Report 24207535 (Version 1)
Quarter: 2024Q3

REPORT INFORMATION
  Report Type: Spontaneous
  Country: RU (occurrence: None)
  Receive Date: 20240814
  Receipt Date: 20240814
  Transmission Date: 20241017
  Serious: Yes (Hospitalization)
  Sender: ASTRAZENECA
  Company Number: 2024A179918

PATIENT
  Age: 15 Year
  Sex: Female

DRUGS (4)
  1. NEXIUM [Suspect]
     Active Substance: ESOMEPRAZOLE MAGNESIUM
     Indication: Suicide attempt
     Dosage: 4 TABLETS
     Route: 048
     Dates: start: 20240501, end: 20240501
  2. RISPERIDONE [Suspect]
     Active Substance: RISPERIDONE
     Indication: Suicide attempt
     Dosage: 6 TABLETS
     Dates: start: 20240501, end: 20240501
  3. SULPIRIDE [Suspect]
     Active Substance: SULPIRIDE
     Indication: Suicide attempt
     Dosage: 5 TABLETS
     Dates: start: 20240501, end: 20240501
  4. EMOXYPINE SUCCINATE [Suspect]
     Active Substance: EMOXYPINE SUCCINATE
     Indication: Suicide attempt
     Dosage: 6 TABLETS
     Dates: start: 20240501, end: 20240501

REACTIONS (2)
  - Dizziness [Recovering/Resolving]
  - Torticollis [Recovering/Resolving]

NARRATIVE: CASE EVENT DATE: 20240502
